FAERS Safety Report 5081477-8 (Version None)
Quarter: 2006Q3

REPORT INFORMATION
  Report Type: 
  Country: None (occurrence: None)
  Receive Date: 20060810
  Receipt Date: 20060726
  Transmission Date: 20061208
  Serious: Yes (Hospitalization)
  Sender: FDA-Public Use
  Company Number: FR200607004691

PATIENT
  Age: 70 Year
  Sex: Female

DRUGS (2)
  1. FORSTEO (TERIPARITIDE) PEN, DISPOSABLE [Suspect]
     Indication: OSTEOPOROSIS
     Dosage: 20 UG, DAILY (1/D), SUBCUTANEOUS
     Route: 058
     Dates: start: 20050120
  2. FORTEO [Concomitant]

REACTIONS (4)
  - ANAEMIA [None]
  - KNEE ARTHROPLASTY [None]
  - PHLEBITIS [None]
  - POST PROCEDURAL HAEMATOMA [None]
